FAERS Safety Report 8973554 (Version 1)
Quarter: 2012Q4

REPORT INFORMATION
  Report Type: 
  Country: HU (occurrence: HU)
  Receive Date: 20121218
  Receipt Date: 20121218
  Transmission Date: 20130627
  Serious: Yes (Other)
  Sender: FDA-Public Use
  Company Number: PHHY2012HU115961

PATIENT
  Sex: Male

DRUGS (1)
  1. ONBREZ [Suspect]

REACTIONS (5)
  - Lung neoplasm malignant [Unknown]
  - Spinal cord disorder [Unknown]
  - Movement disorder [Unknown]
  - Discomfort [Unknown]
  - Malaise [Unknown]
